FAERS Safety Report 4932558-8 (Version None)
Quarter: 2006Q1

REPORT INFORMATION
  Report Type: 
  Country: None (occurrence: None)
  Receive Date: 20060301
  Receipt Date: 20060216
  Transmission Date: 20060701
  Serious: Yes (Other)
  Sender: FDA-Public Use
  Company Number: 2006025700

PATIENT
  Sex: Male

DRUGS (1)
  1. VIAGRA [Suspect]
     Indication: ERECTILE DYSFUNCTION
     Dosage: 100 MG (100 MG, AS NECESSARY) ORAL
     Route: 048
     Dates: start: 20050101

REACTIONS (4)
  - BACK DISORDER [None]
  - DRUG DEPENDENCE [None]
  - EJACULATION FAILURE [None]
  - FEAR [None]
